FAERS Safety Report 11422956 (Version 1)
Quarter: 2015Q3

REPORT INFORMATION
  Report Type: Spontaneous
  Country: DE (occurrence: DE)
  Receive Date: 20150827
  Receipt Date: 20150827
  Transmission Date: 20151125
  Serious: Yes (Life-Threatening)
  Sender: FDA-Public Use
  Company Number: DE-SA-2015SA129057

PATIENT
  Age: 68 Year
  Sex: Female

DRUGS (19)
  1. OXALIPLATIN. [Suspect]
     Active Substance: OXALIPLATIN
     Route: 065
     Dates: start: 200907, end: 200910
  2. FOLIC ACID. [Suspect]
     Active Substance: FOLIC ACID
     Route: 065
     Dates: start: 200907, end: 200910
  3. FOLIC ACID. [Suspect]
     Active Substance: FOLIC ACID
     Route: 065
     Dates: start: 201402, end: 201408
  4. IRINOTECAN [Suspect]
     Active Substance: IRINOTECAN
     Route: 065
     Dates: start: 200907, end: 200910
  5. LEUCOVORIN. [Suspect]
     Active Substance: LEUCOVORIN
     Route: 065
     Dates: start: 201502, end: 201503
  6. OXALIPLATIN. [Suspect]
     Active Substance: OXALIPLATIN
     Route: 065
     Dates: start: 201402, end: 201408
  7. 5-FU [Suspect]
     Active Substance: FLUOROURACIL
     Route: 065
     Dates: start: 2010, end: 201010
  8. AVASTIN [Suspect]
     Active Substance: BEVACIZUMAB
     Route: 065
     Dates: end: 201408
  9. 5-FU [Suspect]
     Active Substance: FLUOROURACIL
     Route: 065
     Dates: start: 201410, end: 201412
  10. 5-FU [Suspect]
     Active Substance: FLUOROURACIL
     Route: 065
     Dates: start: 201505, end: 201506
  11. LEUCOVORIN. [Suspect]
     Active Substance: LEUCOVORIN
     Route: 065
     Dates: start: 201501
  12. 5-FU [Suspect]
     Active Substance: FLUOROURACIL
     Route: 065
     Dates: start: 200907, end: 200910
  13. 5-FU [Suspect]
     Active Substance: FLUOROURACIL
     Route: 065
     Dates: start: 201402, end: 201408
  14. 5-FU [Suspect]
     Active Substance: FLUOROURACIL
     Route: 065
     Dates: start: 20150114
  15. FOLIC ACID. [Suspect]
     Active Substance: FOLIC ACID
     Route: 065
     Dates: start: 2010, end: 201010
  16. LEUCOVORIN. [Suspect]
     Active Substance: LEUCOVORIN
     Route: 065
     Dates: start: 201410, end: 201412
  17. LEUCOVORIN. [Suspect]
     Active Substance: LEUCOVORIN
     Route: 065
     Dates: start: 201505, end: 201506
  18. OXALIPLATIN. [Suspect]
     Active Substance: OXALIPLATIN
     Route: 065
     Dates: start: 2010, end: 201010
  19. 5-FU [Suspect]
     Active Substance: FLUOROURACIL
     Route: 065
     Dates: start: 201502, end: 201503

REACTIONS (1)
  - Acute lymphocytic leukaemia [Not Recovered/Not Resolved]

NARRATIVE: CASE EVENT DATE: 201507
